FAERS Safety Report 9520276 (Version 1)
Quarter: 2013Q3

REPORT INFORMATION
  Report Type: Spontaneous
  Country: US (occurrence: US)
  Receive Date: 20130912
  Receipt Date: 20130912
  Transmission Date: 20140515
  Serious: Yes (Other)
  Sender: FDA-Public Use
  Company Number: US-BRISTOL-MYERS SQUIBB COMPANY-19229129

PATIENT
  Sex: Male

DRUGS (1)
  1. ABILIFY [Suspect]
     Dosage: STARTED ABILIFY 2MG, AND 10 DAYS LATER THEY STARTED HIM ON 5MG

REACTIONS (2)
  - Cerebrovascular accident [Unknown]
  - Gait disturbance [Unknown]
